FAERS Safety Report 7270280-6 (Version None)
Quarter: 2011Q1

REPORT INFORMATION
  Report Type: 
  Country: None (occurrence: None)
  Receive Date: 20110125
  Receipt Date: 20110125
  Transmission Date: 20110831
  Serious: Yes (Other)
  Sender: FDA-Public Use
  Company Number: None

PATIENT
  Age: 23 Year
  Sex: Female
  Weight: 136.0791 kg

DRUGS (5)
  1. EFFEXOR [Concomitant]
  2. DEPAKOTE [Concomitant]
  3. GEODON [Suspect]
     Indication: SCHIZOAFFECTIVE DISORDER
     Dosage: 80MG 3 AT NIGHT PO
     Route: 048
     Dates: start: 20040120, end: 20070705
  4. KLONOPIN [Concomitant]
  5. BENTYL [Concomitant]

REACTIONS (7)
  - CONVULSION [None]
  - DYSPNOEA [None]
  - MYALGIA [None]
  - MOVEMENT DISORDER [None]
  - PARKINSONISM [None]
  - MOANING [None]
  - MUSCLE DISORDER [None]
